FAERS Safety Report 4802803-8 (Version None)
Quarter: 2005Q4

REPORT INFORMATION
  Report Type: 
  Country: None (occurrence: None)
  Receive Date: 20051017
  Receipt Date: 20051017
  Transmission Date: 20060501
  Serious: Yes (Death, Hospitalization)
  Sender: FDA-Public Use
  Company Number: None

PATIENT
  Sex: Female
  Weight: 15.4 kg

DRUGS (5)
  1. CYTARABINE [Suspect]
     Indication: B PRECURSOR TYPE ACUTE LEUKAEMIA
     Dosage: 50 MG IT
     Route: 037
     Dates: start: 20050921, end: 20050921
  2. DEXAMETHASONE [Suspect]
     Dosage: 23.4 MG
     Dates: start: 20050921, end: 20051003
  3. METHOTREXATE [Suspect]
     Dosage: 10 MG IT
     Route: 037
     Dates: start: 20050928, end: 20050928
  4. PEG-L-ASPARAGINASE(K-H) [Suspect]
     Dosage: 1500 IU
     Dates: start: 20050926, end: 20050926
  5. VINCRISTINE SULFATE [Suspect]
     Dosage: 1.8MG
     Dates: start: 20050921, end: 20050928

REACTIONS (15)
  - BODY TEMPERATURE INCREASED [None]
  - BRAIN STEM INFARCTION [None]
  - CARDIAC FAILURE [None]
  - CATHETER RELATED INFECTION [None]
  - CATHETER SITE HAEMORRHAGE [None]
  - CEREBRAL INFARCTION [None]
  - ENTEROCOCCAL INFECTION [None]
  - EYE MOVEMENT DISORDER [None]
  - GINGIVAL BLEEDING [None]
  - NEUTROPENIA [None]
  - PLATELET COUNT DECREASED [None]
  - PNEUMONIA [None]
  - RESPIRATORY ARREST [None]
  - STAPHYLOCOCCAL INFECTION [None]
  - WRONG DRUG ADMINISTERED [None]
